FAERS Safety Report 6455326-7 (Version None)
Quarter: 2009Q4

REPORT INFORMATION
  Report Type: 
  Country: None (occurrence: None)
  Receive Date: 20091125
  Receipt Date: 20091013
  Transmission Date: 20100525
  Serious: No
  Sender: FDA-Public Use
  Company Number: US-ABBOTT-09P-163-0603342-00

PATIENT
  Sex: Female
  Weight: 80.358 kg

DRUGS (5)
  1. SIMCOR [Suspect]
     Indication: BLOOD CHOLESTEROL INCREASED
     Dosage: 500/20MG PER PILL
     Route: 048
     Dates: start: 20090301, end: 20090901
  2. SIMCOR [Suspect]
     Indication: BLOOD TRIGLYCERIDES INCREASED
  3. GLUCOPHAGE [Concomitant]
     Indication: DIABETES MELLITUS
  4. ALLEGRA [Concomitant]
     Indication: HYPERSENSITIVITY
  5. EFFEXOR [Concomitant]
     Indication: DEPRESSION

REACTIONS (3)
  - CARPAL TUNNEL SYNDROME [None]
  - FLUSHING [None]
  - JOINT CREPITATION [None]
